FAERS Safety Report 14398521 (Version 3)
Quarter: 2019Q1

REPORT INFORMATION
  Report Type: Spontaneous
  Country: GR (occurrence: GR)
  Receive Date: 20180116
  Receipt Date: 20190305
  Transmission Date: 20190417
  Serious: Yes (Other)
  Sender: FDA-Public Use
  Company Number: GR-TEVA-2018-GR-843419

PATIENT
  Age: 62 Year
  Sex: Female

DRUGS (48)
  1. CAPECITABINE. [Suspect]
     Active Substance: CAPECITABINE
     Indication: RECURRENT CANCER
  2. DOCETAXEL. [Suspect]
     Active Substance: DOCETAXEL
     Indication: BREAST CANCER METASTATIC
     Route: 065
  3. ERIBULIN [Suspect]
     Active Substance: ERIBULIN
     Indication: BREAST CANCER METASTATIC
     Route: 065
  4. TRASTUZUMAB EMTANSINE [Suspect]
     Active Substance: ADO-TRASTUZUMAB EMTANSINE
     Indication: RECURRENT CANCER
     Dosage: 1 DOSAGE FORMS DAILY; 1 DF, QD
     Route: 065
     Dates: start: 2009
  5. TRASTUZUMAB. [Suspect]
     Active Substance: TRASTUZUMAB
     Dosage: COMBINATION WITH CAPECITABINE
     Route: 065
     Dates: start: 2009
  6. CYCLOPHOSPHAMIDE. [Suspect]
     Active Substance: CYCLOPHOSPHAMIDE
     Indication: BREAST CANCER METASTATIC
     Dosage: REGIMEN #1
     Route: 065
     Dates: start: 2006
  7. ENDOXAN [Suspect]
     Active Substance: CYCLOPHOSPHAMIDE
     Dosage: 1 - EVERY CYCLE REGIMEN#1
     Route: 065
  8. CAPECITABINE. [Suspect]
     Active Substance: CAPECITABINE
     Indication: RECURRENT CANCER
     Dosage: 1 DF, CYCLIC, COMBINATION WITH TRASTUZUMAB
     Route: 065
     Dates: start: 2009
  9. GEMCITABINE HYDROCHLORIDE. [Suspect]
     Active Substance: GEMCITABINE HYDROCHLORIDE
     Indication: BREAST CANCER METASTATIC
     Route: 065
  10. CARBOPLATIN. [Suspect]
     Active Substance: CARBOPLATIN
     Indication: RECURRENT CANCER
  11. LAPATINIB [Suspect]
     Active Substance: LAPATINIB
     Indication: BREAST CANCER METASTATIC
     Dosage: 1 DOSAGE FORMS DAILY; 1 DF, QD COMBINATION WITH CAPECITABINE
     Route: 065
     Dates: start: 2009
  12. TRASTUZUMAB. [Suspect]
     Active Substance: TRASTUZUMAB
     Indication: RECURRENT CANCER
     Dosage: 1 DOSAGE FORMS DAILY; 1 DF, QD
     Route: 065
     Dates: start: 2009
  13. GEMCITABINE HYDROCHLORIDE. [Suspect]
     Active Substance: GEMCITABINE HYDROCHLORIDE
     Indication: RECURRENT CANCER
     Dosage: COMBINATION WITH TRASTUZUMAB AND CARBOPLATIN
     Route: 065
     Dates: start: 2009
  14. ERIBULIN [Suspect]
     Active Substance: ERIBULIN
     Indication: RECURRENT CANCER
     Dosage: REGIMEN #1, COMBINATION WITH TRASTUZUMAB
     Route: 065
     Dates: start: 2009
  15. FULVESTRANT. [Suspect]
     Active Substance: FULVESTRANT
     Indication: METASTATIC MALIGNANT MELANOMA
     Dosage: REGIMEN #1, COMBINATION WITH TRASTUZUMAB
     Route: 065
     Dates: start: 2009
  16. FLUOROURACIL. [Suspect]
     Active Substance: FLUOROURACIL
     Indication: BREAST CANCER METASTATIC
     Dosage: REGIMEN#1
     Route: 065
     Dates: start: 2006
  17. EVEROLIMUS. [Suspect]
     Active Substance: EVEROLIMUS
     Indication: PROPHYLAXIS AGAINST TRANSPLANT REJECTION
     Dosage: 1 DF, CYCLIC, COMBINATION WITH TRASTUZUMAB AND EXEMESRANE
     Route: 065
     Dates: start: 2009
  18. CAPECITABINE. [Suspect]
     Active Substance: CAPECITABINE
     Indication: BREAST CANCER METASTATIC
     Dosage: REGIMEN #1, COMBINATION WITH LAPATINIB
     Route: 065
     Dates: start: 2009
  19. EXEMESTANE. [Suspect]
     Active Substance: EXEMESTANE
     Indication: BREAST CANCER METASTATIC
     Dosage: 1 DOSAGE FORMS DAILY;
     Route: 065
     Dates: start: 2009
  20. CARBOPLATIN. [Suspect]
     Active Substance: CARBOPLATIN
     Indication: BREAST CANCER METASTATIC
     Dosage: 1 - EVERY CYCLE, COMBINATION WITH TRASTUZUMAB AND GEMCITABINE
     Route: 065
     Dates: start: 2009
  21. FULVESTRANT. [Suspect]
     Active Substance: FULVESTRANT
     Indication: RECURRENT CANCER
     Dosage: 1 DOSAGE FORMS DAILY;
     Route: 030
     Dates: start: 2009
  22. LAPATINIB [Suspect]
     Active Substance: LAPATINIB
     Indication: METASTATIC MALIGNANT MELANOMA
     Dosage: 1 DOSAGE FORMS DAILY;
     Route: 065
  23. TAMOXIFEN CITRATE. [Suspect]
     Active Substance: TAMOXIFEN CITRATE
     Indication: RECURRENT CANCER
     Dosage: REGIMEN#1, COMBINATION WITH TRASTUZUMAB
     Route: 048
     Dates: start: 2009
  24. TAMOXIFEN CITRATE. [Suspect]
     Active Substance: TAMOXIFEN CITRATE
     Indication: BREAST CANCER METASTATIC
     Route: 065
  25. TRASTUZUMAB. [Suspect]
     Active Substance: TRASTUZUMAB
     Dosage: REGIMEN #1
     Route: 065
     Dates: start: 2009
  26. TRASTUZUMAB. [Suspect]
     Active Substance: TRASTUZUMAB
     Dosage: 1 DF QD, COMBINATION WITH FULVESTRANT
     Route: 065
     Dates: start: 2009
  27. TRASTUZUMAB. [Suspect]
     Active Substance: TRASTUZUMAB
     Dosage: COMBINATION WITH GEMCITABINE AND CARBOPLATIN
     Route: 065
     Dates: start: 2009
  28. TRASTUZUMAB. [Suspect]
     Active Substance: TRASTUZUMAB
     Dosage: COMBINATION WITH ERIBULIN
     Route: 065
     Dates: start: 2009
  29. EVEROLIMUS. [Suspect]
     Active Substance: EVEROLIMUS
     Indication: BREAST CANCER
     Route: 065
  30. CAPECITABINE BIOGARAN [Suspect]
     Active Substance: CAPECITABINE
     Dosage: 1 DF, QD, COMBINATION WITH TRASTUZUMAB
     Route: 065
  31. EXEMESTANE. [Suspect]
     Active Substance: EXEMESTANE
     Indication: RECURRENT CANCER
     Dosage: COMBINATION WITH TRASTUZUMAB AND EVEROLIMUS
     Route: 065
     Dates: start: 2009
  32. DOCETAXEL. [Suspect]
     Active Substance: DOCETAXEL
     Indication: RECURRENT CANCER
     Dosage: REGIMEN#1
     Route: 065
     Dates: start: 2009
  33. TRASTUZUMAB. [Suspect]
     Active Substance: TRASTUZUMAB
     Indication: BREAST CANCER METASTATIC
     Dosage: 1 DF, QD, COMBINATION WITH CAPECITABINE
     Route: 065
     Dates: start: 2009
  34. EVEROLIMUS. [Suspect]
     Active Substance: EVEROLIMUS
     Indication: RECURRENT CANCER
     Dosage: REGIMEN#1, COMBINATION WITH TRASTZUMAB AND EXEMESTANE
     Route: 065
     Dates: start: 2009
  35. LIPOSOMAL DOXORUBICIN HYDROCHLORIDE [Suspect]
     Active Substance: DOXORUBICIN HYDROCHLORIDE
     Indication: RECURRENT CANCER
     Dosage: REGIMEN#1, COMBINATION WITH TRASTUZUMAB
     Route: 065
     Dates: start: 2009
  36. EPIRUBICIN [Suspect]
     Active Substance: EPIRUBICIN
     Indication: BREAST CANCER METASTATIC
     Dosage: REGIMEN#1
     Route: 065
     Dates: start: 2006
  37. TRASTUZUMAB. [Suspect]
     Active Substance: TRASTUZUMAB
     Dosage: 1 DF, QD, COMBINATION WITH VINORELBINE
     Route: 065
     Dates: start: 2009
  38. TRASTUZUMAB. [Suspect]
     Active Substance: TRASTUZUMAB
     Dosage: COMBINATION WITH EXEMESTANE AND EVEROLIMUS,
     Route: 065
     Dates: start: 2009
  39. VINORELBINE [Suspect]
     Active Substance: VINORELBINE\VINORELBINE TARTRATE
     Indication: RECURRENT CANCER
     Route: 065
  40. VINORELBINE [Suspect]
     Active Substance: VINORELBINE\VINORELBINE TARTRATE
     Dosage: REGIMEN #1, COMBINATION WITH TRASTUZUMAB
     Route: 065
     Dates: start: 2009
  41. CAPECITABINE. [Suspect]
     Active Substance: CAPECITABINE
     Indication: BREAST CANCER METASTATIC
     Dosage: COMBINATION WITH TRASTUZUMAB
     Route: 065
     Dates: start: 2009
  42. LIPOSOMAL DOXORUBICIN HYDROCHLORIDE [Suspect]
     Active Substance: DOXORUBICIN HYDROCHLORIDE
     Indication: BREAST CANCER METASTATIC
     Route: 065
  43. METHOTREXATE SODIUM. [Suspect]
     Active Substance: METHOTREXATE SODIUM
     Indication: BREAST CANCER METASTATIC
     Dosage: REGIMEN #1
     Route: 065
     Dates: start: 2006
  44. LAPATINIB [Suspect]
     Active Substance: LAPATINIB
     Indication: RECURRENT CANCER
     Dosage: REGIMEN #1, COMBINATION WITH CAPECITABINE
     Route: 065
     Dates: start: 2009
  45. VINORELBINE [Suspect]
     Active Substance: VINORELBINE\VINORELBINE TARTRATE
     Indication: BREAST CANCER METASTATIC
     Dosage: 1 DOSAGE FORMS DAILY; 1 DF, QD
     Route: 065
     Dates: start: 2009
  46. GEMCITABINE HYDROCHLORIDE. [Suspect]
     Active Substance: GEMCITABINE HYDROCHLORIDE
     Dosage: 1 DOSAGE FORMS DAILY;  1 DF, QD COMBINATION WITH TRASTUZUMB AND CARBOPLATIN
     Route: 065
     Dates: start: 2009
  47. PACLITAXEL. [Suspect]
     Active Substance: PACLITAXEL
     Indication: BREAST CANCER METASTATIC
     Dosage: REGIMEN#1
     Route: 065
     Dates: start: 2006
  48. TRASTUZUMAB. [Suspect]
     Active Substance: TRASTUZUMAB
     Dosage: 1DF, QD, COMBINATION WITH TAMOXIFEN
     Route: 065
     Dates: start: 2009

REACTIONS (8)
  - Metastases to lung [Unknown]
  - Skin mass [Unknown]
  - Metastases to bone [Unknown]
  - Metastases to lymph nodes [Unknown]
  - Recurrent cancer [Unknown]
  - Oestrogen receptor positive breast cancer [Unknown]
  - Malignant neoplasm progression [Unknown]
  - Metastases to skin [Unknown]

NARRATIVE: CASE EVENT DATE: 2009
